FAERS Safety Report 6042250-7 (Version None)
Quarter: 2009Q1

REPORT INFORMATION
  Report Type: 
  Country: None (occurrence: None)
  Receive Date: 20090116
  Receipt Date: 20090107
  Transmission Date: 20090719
  Serious: Yes (Hospitalization, Other)
  Sender: FDA-Public Use
  Company Number: JP-PFIZER INC-2008087100

PATIENT

DRUGS (4)
  1. VFEND [Suspect]
     Indication: BRONCHOPULMONARY ASPERGILLOSIS
     Dosage: 200 MG, 2X/DAY
     Route: 042
     Dates: start: 20080922, end: 20080922
  2. VFEND [Suspect]
     Dosage: 320 MG, 1X/DAY
     Route: 042
     Dates: start: 20080923, end: 20081004
  3. ITRIZOLE [Concomitant]
     Dosage: 200 MG, 1X/DAY
     Route: 048
     Dates: start: 20071113, end: 20080921
  4. PREDNISOLONE [Concomitant]
     Dosage: UNK
     Dates: start: 20080302

REACTIONS (1)
  - INTERSTITIAL LUNG DISEASE [None]
